FAERS Safety Report 13618217 (Version 1)
Quarter: 2017Q2

REPORT INFORMATION
  Report Type: Spontaneous
  Country: JP (occurrence: JP)
  Receive Date: 20170606
  Receipt Date: 20170606
  Transmission Date: 20170830
  Serious: Yes (Hospitalization, Other)
  Sender: FDA-Public Use
  Company Number: JP-PFIZER INC-2017240662

PATIENT
  Age: 38 Year
  Sex: Male

DRUGS (4)
  1. IDARUBICIN HCL [Suspect]
     Active Substance: IDARUBICIN HYDROCHLORIDE
  2. CYTARABINE. [Suspect]
     Active Substance: CYTARABINE
  3. PREDNISOLONE. [Concomitant]
     Active Substance: PREDNISOLONE
  4. MESALAZINE [Concomitant]
     Active Substance: MESALAMINE

REACTIONS (2)
  - Behcet^s syndrome [Recovered/Resolved]
  - Condition aggravated [Recovered/Resolved]
